FAERS Safety Report 6955494-4 (Version None)
Quarter: 2010Q3

REPORT INFORMATION
  Report Type: 
  Country: None (occurrence: None)
  Receive Date: 20100830
  Receipt Date: 20100825
  Transmission Date: 20110219
  Serious: Yes (Other)
  Sender: FDA-Public Use
  Company Number: US-BRISTOL-MYERS SQUIBB COMPANY-15254980

PATIENT
  Sex: Male

DRUGS (1)
  1. ABILIFY [Suspect]
     Dosage: INITIALY 5 MG TAKEN

REACTIONS (7)
  - DIZZINESS [None]
  - FEAR [None]
  - HAEMOPTYSIS [None]
  - PARALYSIS [None]
  - SOMNOLENCE [None]
  - THROAT IRRITATION [None]
  - VISION BLURRED [None]
